FAERS Safety Report 24988980 (Version 1)
Quarter: 2025Q1

REPORT INFORMATION
  Report Type: Spontaneous
  Country: US (occurrence: US)
  Receive Date: 20250220
  Receipt Date: 20250220
  Transmission Date: 20250409
  Serious: No
  Sender: TARO
  Company Number: US-TARO PHARMACEUTICALS USA INC.-2024TAR00302

PATIENT

DRUGS (1)
  1. MINOXIDIL [Suspect]
     Active Substance: MINOXIDIL
     Indication: Alopecia
     Dosage: UNK, 2 CAPFULS., OD
     Route: 061
     Dates: start: 2023

REACTIONS (3)
  - Off label use [Unknown]
  - Product use issue [Unknown]
  - Drug ineffective [Unknown]
